FAERS Safety Report 9817516 (Version 2)
Quarter: 2014Q1

REPORT INFORMATION
  Report Type: Report from Study
  Country: US (occurrence: US)
  Receive Date: 20140115
  Receipt Date: 20140219
  Transmission Date: 20141002
  Serious: Yes (Other)
  Sender: FDA-Public Use
  Company Number: US-BRISTOL-MYERS SQUIBB COMPANY-19974732

PATIENT
  Sex: Male

DRUGS (12)
  1. ARIPIPRAZOLE [Suspect]
     Indication: DEPRESSION
     Dosage: LAST DOSE: 10DEC2013
     Dates: start: 20130926
  2. DEXAMETHASONE [Concomitant]
  3. FENTANYL [Concomitant]
  4. HYDRALAZINE [Concomitant]
  5. HYDROMORPHONE [Concomitant]
  6. LABETALOL HCL INJ [Concomitant]
  7. ONDANSETRON [Concomitant]
  8. CEFAZOLIN [Concomitant]
  9. METRONIDAZOLE [Concomitant]
  10. POLYETHYLENE GLYCOL [Concomitant]
  11. PSYLLIUM [Concomitant]
  12. MEPERIDINE [Concomitant]

REACTIONS (1)
  - Anal fistula [Recovered/Resolved]
